FAERS Safety Report 15936465 (Version 1)
Quarter: 2019Q1

REPORT INFORMATION
  Report Type: Report from Study
  Country: CR (occurrence: CR)
  Receive Date: 20190208
  Receipt Date: 20190208
  Transmission Date: 20190417
  Serious: Yes (Hospitalization)
  Sender: FDA-Public Use
  Company Number: CR-SA-2019SA032522

PATIENT
  Age: 47 Year
  Sex: Male

DRUGS (2)
  1. APROVASC [Suspect]
     Active Substance: AMLODIPINE BESYLATE\IRBESARTAN
     Dosage: 1 DF (1 ORAL TABLET OF 300 MG OF IRBESARTAN + 10 MG OF AMLODIPINE), QD
     Route: 048
     Dates: start: 201805
  2. IRBESARTAN. [Suspect]
     Active Substance: IRBESARTAN
     Indication: HYPERTENSION
     Dosage: 1 DF,(1 ORAL TABLET OF 300 MG OF IRBESARTAN), QD
     Route: 048
     Dates: start: 2011

REACTIONS (2)
  - Nasal polypectomy [Recovered/Resolved]
  - Prescribed overdose [Unknown]

NARRATIVE: CASE EVENT DATE: 201805
